FAERS Safety Report 8612735-5 (Version None)
Quarter: 2012Q3

REPORT INFORMATION
  Report Type: 
  Country: None (occurrence: None)
  Receive Date: 20120822
  Receipt Date: 20110823
  Transmission Date: 20120928
  Serious: No
  Sender: FDA-Public Use
  Company Number: US-ASTRAZENECA-2011SE50662

PATIENT
  Age: 80 Year
  Sex: Male
  Weight: 77.1 kg

DRUGS (5)
  1. AMLODIPINE [Concomitant]
  2. SYMBICORT [Suspect]
     Indication: ASTHMA
     Dosage: FREQUENCY IS ONCE A DAY
     Route: 055
     Dates: start: 20090101
  3. NEXIUM [Suspect]
     Route: 048
  4. METFORMIN [Concomitant]
  5. HYZAAR [Concomitant]

REACTIONS (2)
  - DYSPHONIA [None]
  - VOCAL CORD DISORDER [None]
